FAERS Safety Report 4915505-4 (Version None)
Quarter: 2006Q1

REPORT INFORMATION
  Report Type: 
  Country: None (occurrence: None)
  Receive Date: 20060217
  Receipt Date: 20050407
  Transmission Date: 20060701
  Serious: Yes (Hospitalization, Disabling)
  Sender: FDA-Public Use
  Company Number: US-MERCK-0504USA00989

PATIENT
  Age: 51 Year
  Sex: Female
  Weight: 64 kg

DRUGS (2)
  1. VIOXX [Suspect]
     Indication: BACK PAIN
     Route: 048
     Dates: start: 20010308, end: 20021114
  2. TYLENOL [Concomitant]
     Route: 065

REACTIONS (6)
  - BACK INJURY [None]
  - CEREBROVASCULAR ACCIDENT [None]
  - CONCUSSION [None]
  - CONTUSION [None]
  - HAND FRACTURE [None]
  - NECK INJURY [None]
